FAERS Safety Report 21499195 (Version 3)
Quarter: 2022Q4

REPORT INFORMATION
  Report Type: Report from Study
  Country: GB (occurrence: None)
  Receive Date: 20221024
  Receipt Date: 20221202
  Transmission Date: 20230112
  Serious: Yes (Hospitalization)
  Sender: FDA-Public Use
  Company Number: GB-ROCHE-2751453

PATIENT
  Age: 83 Year
  Sex: Female

DRUGS (27)
  1. FARICIMAB [Suspect]
     Active Substance: FARICIMAB
     Indication: Neovascular age-related macular degeneration
     Dosage: ON 16/DEC/2020 AT 15.45 RECEIVED MOST RECENT DOSE OF DRUG PRIOR TO ADVERSE EVENT/ SERIOUS ADVERSE EV
     Route: 050
     Dates: start: 20191023
  2. FARICIMAB [Suspect]
     Active Substance: FARICIMAB
     Indication: Neovascular age-related macular degeneration
     Dosage: ON 16/DEC/2020 AT 15.45 RECEIVED MOST RECENT DOSE OF DRUG PRIOR TO ADVERSE EVENT/ SERIOUS ADVERSE EV
     Route: 050
     Dates: start: 20191023
  3. AFLIBERCEPT [Suspect]
     Active Substance: AFLIBERCEPT
     Indication: Neovascular age-related macular degeneration
     Dosage: DATE OF MOST RECENT DOSE (2 MG) OF AFLIBERCEPT PRIOR TO AE/SAE: 29/JUL/2020 3:40 PM
     Route: 050
     Dates: start: 20200603
  4. FARICIMAB [Suspect]
     Active Substance: FARICIMAB
     Indication: Neovascular age-related macular degeneration
     Dosage: START AND END DATE OF MOST RECENT DOSE OF STUDY DRUG PRIOR TO AE AND SAE 29-JUN-2022 3:20 PM
     Route: 050
     Dates: start: 20211215
  5. FUROSEMIDE [Concomitant]
     Active Substance: FUROSEMIDE
     Indication: Oedema peripheral
     Route: 048
     Dates: start: 20190916, end: 20210223
  6. LANSOPRAZOLE [Concomitant]
     Active Substance: LANSOPRAZOLE
     Route: 048
     Dates: start: 20101110
  7. CLOPIDOGREL [Concomitant]
     Active Substance: CLOPIDOGREL BISULFATE
     Route: 048
     Dates: start: 20101119
  8. GABAPENTIN [Concomitant]
     Active Substance: GABAPENTIN
     Indication: Sciatica
     Route: 048
     Dates: start: 20191001
  9. ACETAMINOPHEN [Concomitant]
     Active Substance: ACETAMINOPHEN
     Indication: Rheumatoid arthritis
     Route: 048
     Dates: start: 20151030
  10. ACETAMINOPHEN [Concomitant]
     Active Substance: ACETAMINOPHEN
     Indication: Abdominal pain
  11. CHOLECALCIFEROL [Concomitant]
     Active Substance: CHOLECALCIFEROL
     Route: 048
     Dates: start: 20160524
  12. HYDROXYUREA [Concomitant]
     Active Substance: HYDROXYUREA
     Indication: Thrombocytosis
     Route: 048
     Dates: start: 20121220
  13. FERROUS SULFATE [Concomitant]
     Active Substance: FERROUS SULFATE
     Route: 048
  14. LACTULOSE [Concomitant]
     Active Substance: LACTULOSE
     Indication: Irritable bowel syndrome
     Route: 048
  15. POLYETHYLENE GLYCOLS [Concomitant]
     Active Substance: POLYETHYLENE GLYCOLS
     Indication: Intestinal obstruction
     Route: 048
     Dates: start: 20210410, end: 20210418
  16. POLYETHYLENE GLYCOLS [Concomitant]
     Active Substance: POLYETHYLENE GLYCOLS
     Indication: Constipation
  17. CODEINE [Concomitant]
     Active Substance: CODEINE
     Indication: Sciatica
     Route: 048
     Dates: start: 20200101
  18. DIHYDROCODEINE [Concomitant]
     Active Substance: DIHYDROCODEINE
     Route: 048
     Dates: start: 20200417
  19. CANNABIDIOL [Concomitant]
     Active Substance: CANNABIDIOL
     Indication: Arthritis
     Route: 045
     Dates: start: 202103
  20. ENOXAPARIN [Concomitant]
     Active Substance: ENOXAPARIN
     Route: 058
     Dates: start: 20210409, end: 20210418
  21. ARACHIS OIL [Concomitant]
     Indication: Constipation
     Route: 054
     Dates: start: 20210410, end: 20210410
  22. ARACHIS OIL [Concomitant]
     Indication: Intestinal obstruction
  23. NORMAL SALINE;GLUCOSE [Concomitant]
     Indication: Vomiting
     Route: 042
     Dates: start: 20210409, end: 20210409
  24. SODIUM PHOSPHATE, DIBASIC\SODIUM PHOSPHATE, MONOBASIC [Concomitant]
     Active Substance: SODIUM PHOSPHATE, DIBASIC\SODIUM PHOSPHATE, MONOBASIC
     Indication: Constipation
     Route: 054
     Dates: start: 20210410, end: 20210410
  25. SODIUM PHOSPHATE, DIBASIC\SODIUM PHOSPHATE, MONOBASIC [Concomitant]
     Active Substance: SODIUM PHOSPHATE, DIBASIC\SODIUM PHOSPHATE, MONOBASIC
     Indication: Intestinal obstruction
  26. GASTROGRAFIN [Concomitant]
     Active Substance: DIATRIZOATE MEGLUMINE\DIATRIZOATE SODIUM
     Indication: Constipation
     Route: 048
     Dates: start: 20210411, end: 20210411
  27. GASTROGRAFIN [Concomitant]
     Active Substance: DIATRIZOATE MEGLUMINE\DIATRIZOATE SODIUM
     Indication: Intestinal obstruction

REACTIONS (4)
  - Abdominal pain [Recovered/Resolved]
  - Vomiting [Recovered/Resolved]
  - Gastrointestinal stoma complication [Recovered/Resolved]
  - Intestinal obstruction [Recovered/Resolved]

NARRATIVE: CASE EVENT DATE: 20210110
